FAERS Safety Report 15588659 (Version 1)
Quarter: 2018Q4

REPORT INFORMATION
  Report Type: Spontaneous
  Country: US (occurrence: US)
  Receive Date: 20181106
  Receipt Date: 20181106
  Transmission Date: 20190205
  Serious: Yes (Other)
  Sender: FDA-Public Use
  Company Number: US-ROCHE-2210611

PATIENT
  Age: 70 Year
  Sex: Female

DRUGS (3)
  1. PREDNISONE. [Concomitant]
     Active Substance: PREDNISONE
  2. METHOTREXATE. [Concomitant]
     Active Substance: METHOTREXATE
  3. ACTEMRA [Suspect]
     Active Substance: TOCILIZUMAB
     Indication: POLYMYALGIA RHEUMATICA
     Route: 065

REACTIONS (4)
  - Road traffic accident [Unknown]
  - Fracture [Unknown]
  - Contusion [Unknown]
  - Alopecia [Unknown]

NARRATIVE: CASE EVENT DATE: 201810
